FAERS Safety Report 5574143-3 (Version None)
Quarter: 2007Q4

REPORT INFORMATION
  Report Type: 
  Country: None (occurrence: None)
  Receive Date: 20071221
  Receipt Date: 20071217
  Transmission Date: 20080405
  Serious: Yes (Hospitalization)
  Sender: FDA-Public Use
  Company Number: APP200700339

PATIENT
  Age: 91 Year
  Sex: Female
  Weight: 61.2356 kg

DRUGS (6)
  1. GENTAMICIN [Suspect]
     Indication: PSEUDOMONAS INFECTION
     Dosage: 120 MG, DAILY, INTRAVENOUS
     Route: 042
     Dates: start: 20071019, end: 20071109
  2. GENTAMICIN [Suspect]
     Indication: SINUSITIS
     Dosage: 120 MG, DAILY, INTRAVENOUS
     Route: 042
     Dates: start: 20071019, end: 20071109
  3. AVALIDE (KARVEA  HCT) [Concomitant]
  4. SYNTHROID [Concomitant]
  5. LORATIDINE (LORATIDINE) [Concomitant]
  6. ASPIRIN [Concomitant]

REACTIONS (4)
  - BALANCE DISORDER [None]
  - DRUG TOXICITY [None]
  - LOSS OF CONSCIOUSNESS [None]
  - VESTIBULAR FUNCTION TEST ABNORMAL [None]
